FAERS Safety Report 15179726 (Version 1)
Quarter: 2018Q3

REPORT INFORMATION
  Report Type: Spontaneous
  Country: US (occurrence: US)
  Receive Date: 20180723
  Receipt Date: 20180723
  Transmission Date: 20181010
  Serious: Yes (Hospitalization)
  Sender: FDA-Public Use
  Company Number: US-ROCHE-2156337

PATIENT
  Age: 68 Year
  Sex: Female

DRUGS (4)
  1. SULFAMETHOXAZOLE/TRIMETHOPRIM [Suspect]
     Active Substance: SULFAMETHOXAZOLE\TRIMETHOPRIM
     Indication: PNEUMOCYSTIS JIROVECII PNEUMONIA
     Route: 042
  2. PREDNISONE. [Suspect]
     Active Substance: PREDNISONE
     Indication: DERMATOMYOSITIS
     Route: 065
  3. METHYLPREDNISOLONE. [Concomitant]
     Active Substance: METHYLPREDNISOLONE
     Route: 042
  4. RITUXIMAB. [Suspect]
     Active Substance: RITUXIMAB
     Indication: DERMATOMYOSITIS
     Route: 065

REACTIONS (4)
  - Lactic acidosis [Recovering/Resolving]
  - Blood osmolarity increased [Recovering/Resolving]
  - Toxicity to various agents [Recovering/Resolving]
  - Pneumocystis jirovecii pneumonia [Unknown]
